FAERS Safety Report 24242156 (Version 2)
Quarter: 2024Q3

REPORT INFORMATION
  Report Type: Spontaneous
  Country: JP (occurrence: JP)
  Receive Date: 20240823
  Receipt Date: 20240918
  Transmission Date: 20241017
  Serious: Yes (Other)
  Sender: NOVARTIS
  Company Number: JP-002147023-NVSJ2024JP009712

PATIENT
  Age: 51 Year
  Sex: Female
  Weight: 52.2 kg

DRUGS (4)
  1. TASIGNA [Suspect]
     Active Substance: NILOTINIB
     Indication: Chronic myeloid leukaemia
     Dosage: 300 MG
     Route: 048
     Dates: end: 202207
  2. TASIGNA [Suspect]
     Active Substance: NILOTINIB
     Dosage: 400 MG
     Route: 048
     Dates: start: 202207, end: 202208
  3. TASIGNA [Suspect]
     Active Substance: NILOTINIB
     Dosage: 200 MG
     Route: 048
     Dates: start: 202209
  4. TASIGNA [Suspect]
     Active Substance: NILOTINIB
     Dosage: 100 MG
     Route: 048
     Dates: end: 202210

REACTIONS (3)
  - Electrocardiogram QT prolonged [Recovered/Resolved]
  - Platelet count decreased [Recovered/Resolved]
  - Platelet count decreased [Recovering/Resolving]

NARRATIVE: CASE EVENT DATE: 20220701
